FAERS Safety Report 14703903 (Version 1)
Quarter: 2018Q2

REPORT INFORMATION
  Report Type: Spontaneous
  Country: JP (occurrence: JP)
  Receive Date: 20180402
  Receipt Date: 20180402
  Transmission Date: 20180711
  Serious: Yes (Other)
  Sender: FDA-Public Use
  Company Number: JP-BRISTOL-MYERS SQUIBB COMPANY-B044363

PATIENT
  Age: 40 Year
  Sex: Male

DRUGS (8)
  1. RETROVIR [Concomitant]
     Active Substance: ZIDOVUDINE
     Indication: HIV INFECTION
     Dosage: 300 MG, UNK
     Route: 048
     Dates: start: 19960822, end: 19970827
  2. HIVID [Concomitant]
     Active Substance: ZALCITABINE
     Indication: HIV INFECTION
     Dosage: 2.3 MG, UNK
     Route: 048
     Dates: start: 19960822, end: 19970827
  3. RITONAVIR. [Concomitant]
     Active Substance: RITONAVIR
     Indication: HIV INFECTION
     Dosage: DOSE VALUE: 400-800
     Route: 048
     Dates: start: 19980121
  4. SAQUINAVIR [Concomitant]
     Active Substance: SAQUINAVIR
     Indication: HIV INFECTION
     Dosage: 800 MG, UNK
     Route: 048
     Dates: start: 19980205
  5. ZERIT [Suspect]
     Active Substance: STAVUDINE
     Indication: HIV INFECTION
     Dosage: DOSE VALUE: 60-80 DOSE UNIT: MILLIGRAM PER DAY
     Route: 048
     Dates: start: 19970205
  6. NEVIRAPINE. [Suspect]
     Active Substance: NEVIRAPINE
     Indication: HIV INFECTION
     Dosage: DOSE VALUE: 200-400
     Route: 048
     Dates: start: 19970828, end: 19980120
  7. EPIVIR [Suspect]
     Active Substance: LAMIVUDINE
     Indication: HIV INFECTION
     Dosage: 300 MG, UNK
     Route: 048
     Dates: start: 19970828
  8. CRIXIVAN [Concomitant]
     Active Substance: INDINAVIR SULFATE
     Indication: HIV INFECTION
     Dosage: 2.4 MG, UNK
     Route: 048
     Dates: start: 19960822, end: 19970501

REACTIONS (3)
  - Hepatic function abnormal [Unknown]
  - Nausea [Unknown]
  - Progressive multifocal leukoencephalopathy [Unknown]

NARRATIVE: CASE EVENT DATE: 19970930
